FAERS Safety Report 6305811-3 (Version None)
Quarter: 2009Q3

REPORT INFORMATION
  Report Type: 
  Country: None (occurrence: None)
  Receive Date: 20090806
  Receipt Date: 20080910
  Transmission Date: 20100115
  Serious: Yes (Hospitalization)
  Sender: FDA-Public Use
  Company Number: 1-16637476

PATIENT
  Age: 72 Year
  Sex: Male

DRUGS (5)
  1. BACTRIM [Suspect]
     Dates: start: 20080501, end: 20080601
  2. THALOMID [Suspect]
     Indication: MULTIPLE MYELOMA
     Dosage: 200 MG, DAILY, ORAL
     Route: 048
     Dates: start: 20080602
  3. ARANESP [Concomitant]
  4. COLACE (DOCUSATE SODIUM) [Concomitant]
  5. DEXAMETHASONE [Concomitant]

REACTIONS (3)
  - PYREXIA [None]
  - RASH GENERALISED [None]
  - SOMNOLENCE [None]
